FAERS Safety Report 16608320 (Version 1)
Quarter: 2019Q3

REPORT INFORMATION
  Report Type: Spontaneous
  Country: US (occurrence: US)
  Receive Date: 20190719
  Receipt Date: 20190719
  Transmission Date: 20191004
  Serious: No
  Sender: FDA-Public Use
  Company Number: None

PATIENT
  Age: 71 Year
  Sex: Female
  Weight: 83.25 kg

DRUGS (6)
  1. CIPROFLOXACN HCL 500MG TAB AUR, GENERIC EQUIVELANT FOR CIPRO 500MG TAB [Suspect]
     Active Substance: CIPROFLOXACIN HYDROCHLORIDE
     Indication: URINARY TRACT INFECTION
     Dosage: ?          QUANTITY:1 TABLET(S);?
     Route: 048
     Dates: start: 20190709, end: 20190710
  2. TAMSULOSIN [Concomitant]
     Active Substance: TAMSULOSIN
  3. ONDANSETRON ODT [Concomitant]
     Active Substance: ONDANSETRON
  4. OXYCODONE AND ACETAMINOPHEN [Concomitant]
     Active Substance: ACETAMINOPHEN\OXYCODONE HYDROCHLORIDE
  5. IBUPROFEN 600 MG [Concomitant]
     Active Substance: IBUPROFEN
  6. VITAMIN [Concomitant]
     Active Substance: VITAMINS

REACTIONS (11)
  - Back pain [None]
  - Therapeutic product effect decreased [None]
  - Decreased appetite [None]
  - Headache [None]
  - Dizziness [None]
  - Feeling abnormal [None]
  - Diarrhoea [None]
  - Tendonitis [None]
  - Fatigue [None]
  - Therapy cessation [None]
  - Abdominal pain upper [None]

NARRATIVE: CASE EVENT DATE: 20190710
